FAERS Safety Report 16852870 (Version 6)
Quarter: 2020Q1

REPORT INFORMATION
  Report Type: Spontaneous
  Country: US (occurrence: US)
  Receive Date: 20190925
  Receipt Date: 20200207
  Transmission Date: 20200409
  Serious: Yes (Other)
  Sender: FDA-Public Use
  Company Number: US-JNJFOC-20190926697

PATIENT
  Age: 45 Year
  Sex: Male
  Weight: 65.83 kg

DRUGS (7)
  1. INVEGA SUSTENNA [Suspect]
     Active Substance: PALIPERIDONE PALMITATE
     Indication: SCHIZOPHRENIA
     Route: 042
     Dates: start: 20160627, end: 201901
  2. PROZAC [Concomitant]
     Active Substance: FLUOXETINE HYDROCHLORIDE
     Indication: BIPOLAR DISORDER
     Route: 065
     Dates: start: 201606, end: 201901
  3. FLUOXETINE [Concomitant]
     Active Substance: FLUOXETINE HYDROCHLORIDE
  4. ATORVASTATIN [Concomitant]
     Active Substance: ATORVASTATIN
     Indication: BLOOD CHOLESTEROL INCREASED
     Route: 065
     Dates: start: 201909
  5. BENZTROPEINE [Concomitant]
     Active Substance: TROPINE BENZYLATE
  6. INVEGA TRINZA [Suspect]
     Active Substance: PALIPERIDONE PALMITATE
     Indication: SCHIZOPHRENIA
     Route: 030
     Dates: end: 201901
  7. INVEGA [Suspect]
     Active Substance: PALIPERIDONE
     Indication: SCHIZOPHRENIA
     Route: 048
     Dates: start: 2016, end: 2016

REACTIONS (6)
  - Hyperprolactinaemia [Not Recovered/Not Resolved]
  - Weight increased [Recovered/Resolved]
  - Feeling abnormal [Not Recovered/Not Resolved]
  - Nephropathy [Not Recovered/Not Resolved]
  - Hyperlipidaemia [Unknown]
  - Bundle branch block left [Not Recovered/Not Resolved]

NARRATIVE: CASE EVENT DATE: 201606
